FAERS Safety Report 8588358-3 (Version None)
Quarter: 2012Q3

REPORT INFORMATION
  Report Type: 
  Country: None (occurrence: None)
  Receive Date: 20120813
  Receipt Date: 20120801
  Transmission Date: 20120928
  Serious: Yes (Other)
  Sender: FDA-Public Use
  Company Number: US-BAYER-2012-036859

PATIENT
  Age: 40 Year
  Sex: Female
  Weight: 57.596 kg

DRUGS (3)
  1. YAZ [Suspect]
     Indication: PREMENSTRUAL SYNDROME
     Dosage: UNK
     Route: 048
     Dates: start: 20050101, end: 20090801
  2. TOPAMAX [Concomitant]
     Indication: MIGRAINE PROPHYLAXIS
     Dosage: 25 MG, TWICE DAILY
     Route: 048
     Dates: start: 20080101
  3. TREXIMET [Concomitant]
     Indication: MIGRAINE
     Dosage: 85MG-500MG
     Route: 048
     Dates: start: 20090101

REACTIONS (10)
  - LIMB DISCOMFORT [None]
  - INJURY [None]
  - DEEP VEIN THROMBOSIS [None]
  - EMOTIONAL DISTRESS [None]
  - GENERAL PHYSICAL HEALTH DETERIORATION [None]
  - PERSONALITY CHANGE [None]
  - FATIGUE [None]
  - OEDEMA PERIPHERAL [None]
  - ANXIETY [None]
  - PAIN [None]
